FAERS Safety Report 15222552 (Version 1)
Quarter: 2018Q3

REPORT INFORMATION
  Report Type: Spontaneous
  Country: US (occurrence: US)
  Receive Date: 20180731
  Receipt Date: 20180731
  Transmission Date: 20181010
  Serious: Yes (Other)
  Sender: FDA-Public Use
  Company Number: US-AMGEN-USASP2018101332

PATIENT
  Age: 75 Year
  Sex: Female

DRUGS (1)
  1. PROLIA [Suspect]
     Active Substance: DENOSUMAB
     Indication: OSTEOPOROSIS POSTMENOPAUSAL
     Dosage: 60 MG, Q6MO
     Route: 065
     Dates: start: 2014

REACTIONS (6)
  - Patella fracture [Unknown]
  - Bone pain [Unknown]
  - Fall [Unknown]
  - Arthritis [Unknown]
  - Macular degeneration [Unknown]
  - Groin pain [Unknown]

NARRATIVE: CASE EVENT DATE: 201803
